FAERS Safety Report 5026368-3 (Version None)
Quarter: 2006Q2

REPORT INFORMATION
  Report Type: 
  Country: None (occurrence: None)
  Receive Date: 20060426
  Receipt Date: 20060202
  Transmission Date: 20061013
  Serious: Yes (Other)
  Sender: FDA-Public Use
  Company Number: 2006017888

PATIENT
  Age: 59 Year
  Sex: Male
  Weight: 64.4108 kg

DRUGS (2)
  1. LYRICA [Suspect]
     Indication: NEURALGIA
     Dosage: 50 MG (50 MG, 1 IN 1 D), ORAL 5-6 WEEKS AGO
     Route: 048
  2. PERCOCET [Concomitant]

REACTIONS (1)
  - CONSTIPATION [None]
